FAERS Safety Report 6836884-7 (Version None)
Quarter: 2010Q3

REPORT INFORMATION
  Report Type: 
  Country: None (occurrence: None)
  Receive Date: 20100708
  Receipt Date: 20100625
  Transmission Date: 20110219
  Serious: Yes (Other)
  Sender: FDA-Public Use
  Company Number: MIN-00623

PATIENT
  Age: 40 Year
  Sex: Female
  Weight: 63.5036 kg

DRUGS (2)
  1. MINOCIN [Suspect]
     Indication: LICHEN PLANUS
     Dosage: 200MG, DAILY, ORAL
     Route: 048
     Dates: start: 20100601
  2. OMNARIS (CICLESONIDE) NASAL SPRAY [Suspect]
     Dates: start: 20100601

REACTIONS (11)
  - ARTHRALGIA [None]
  - DRUG EFFECT DECREASED [None]
  - DYSPEPSIA [None]
  - HEPATIC ENZYME INCREASED [None]
  - JOINT STIFFNESS [None]
  - OESOPHAGEAL PAIN [None]
  - PAIN [None]
  - RASH PUSTULAR [None]
  - SERUM SICKNESS-LIKE REACTION [None]
  - VOMITING [None]
  - WHITE BLOOD CELL COUNT DECREASED [None]
